FAERS Safety Report 24651871 (Version 1)
Quarter: 2024Q4

REPORT INFORMATION
  Report Type: Spontaneous
  Country: US (occurrence: US)
  Receive Date: 20241122
  Receipt Date: 20241122
  Transmission Date: 20250115
  Serious: No
  Sender: GLAXOSMITHKLINE
  Company Number: US-GSK-US2023AMR064284

PATIENT
  Sex: Female

DRUGS (2)
  1. NUCALA [Suspect]
     Active Substance: MEPOLIZUMAB
     Indication: Asthma
     Dosage: UNK
  2. PREDNISONE [Suspect]
     Active Substance: PREDNISONE
     Indication: Asthma
     Dosage: UNK

REACTIONS (4)
  - Hypersensitivity [Unknown]
  - Weight decreased [Unknown]
  - Musculoskeletal stiffness [Unknown]
  - Arthralgia [Unknown]
